FAERS Safety Report 8261401-7 (Version None)
Quarter: 2012Q2

REPORT INFORMATION
  Report Type: 
  Country: None (occurrence: None)
  Receive Date: 20120405
  Receipt Date: 20120327
  Transmission Date: 20120825
  Serious: Yes (Hospitalization)
  Sender: FDA-Public Use
  Company Number: US-BAYER-2012-025072

PATIENT
  Age: 21 Year
  Sex: Female
  Weight: 54.422 kg

DRUGS (8)
  1. AMOXICILLIN [Concomitant]
     Indication: RESPIRATORY TRACT INFECTION
     Dosage: UNK
     Dates: start: 20070101
  2. PROAIR HFA [Concomitant]
     Indication: ASTHMA
     Dosage: UNK
     Dates: start: 20070101
  3. YAZ [Suspect]
     Indication: CONTRACEPTION
     Dosage: UNK
     Dates: start: 20090801, end: 20100901
  4. PROAIR HFA [Concomitant]
     Indication: DYSPNOEA
  5. YAZ [Suspect]
     Indication: PREMENSTRUAL SYNDROME
  6. REMERON [Concomitant]
     Indication: DEPRESSION
     Dosage: UNK
     Dates: start: 20090101
  7. ALBUTEROL [Concomitant]
     Indication: ASTHMA
     Dosage: UNK
     Dates: start: 20070101
  8. ALBUTEROL [Concomitant]
     Indication: DYSPNOEA

REACTIONS (2)
  - DEEP VEIN THROMBOSIS [None]
  - POST-TRAUMATIC STRESS DISORDER [None]
